FAERS Safety Report 6780324-3 (Version None)
Quarter: 2010Q2

REPORT INFORMATION
  Report Type: 
  Country: None (occurrence: None)
  Receive Date: 20100618
  Receipt Date: 20100609
  Transmission Date: 20101027
  Serious: Yes (Life-Threatening)
  Sender: FDA-Public Use
  Company Number: GB-AMGEN-US356166

PATIENT
  Sex: Female

DRUGS (6)
  1. ENBREL [Suspect]
     Indication: DRUG USE FOR UNKNOWN INDICATION
     Route: 058
     Dates: start: 20081205, end: 20090625
  2. CO-DYDRAMOL [Concomitant]
     Indication: RHEUMATOID ARTHRITIS
     Dosage: 2 TABLET EVERY 1 PRN
     Route: 048
  3. RISEDRONATE SODIUM [Concomitant]
     Indication: OSTEOPOROSIS PROPHYLAXIS
     Route: 048
  4. ADCAL D3 [Concomitant]
     Indication: OSTEOPOROSIS PROPHYLAXIS
     Route: 048
  5. PREDNISOLONE [Concomitant]
     Indication: RHEUMATOID ARTHRITIS
     Route: 048
     Dates: start: 20080827
  6. PHENYTOIN [Concomitant]
     Indication: EPILEPSY
     Dosage: UNKNOWN
     Route: 048

REACTIONS (3)
  - ARRHYTHMIA [None]
  - CEREBRAL INFARCTION [None]
  - HODGKIN'S DISEASE MIXED CELLULARITY STAGE III [None]
